FAERS Safety Report 24165289 (Version 1)
Quarter: 2024Q3

REPORT INFORMATION
  Report Type: Spontaneous
  Country: US (occurrence: US)
  Receive Date: 20240802
  Receipt Date: 20240802
  Transmission Date: 20241017
  Serious: Yes (Death, Other)
  Sender: BAXTER
  Company Number: US-BAXTER-2024BAX017920

PATIENT
  Age: 63 Year
  Sex: Female

DRUGS (8)
  1. DEXTROSE [Suspect]
     Active Substance: DEXTROSE\DEXTROSE MONOHYDRATE
     Dosage: SODIUM BICARBONATE (150 MEQ) 150 ML WAS ADDED TO 850ML D5W TOTAL VOLUME 1000ML, RATE OF INFUSION WAS
     Route: 041
     Dates: start: 20240418
  2. DEXTROSE [Suspect]
     Active Substance: DEXTROSE\DEXTROSE MONOHYDRATE
     Dosage: SODIUM BICARBONATE (150 MEQ) 150 ML WAS ADDED TO 850ML D5W TOTAL VOLUME 1000ML, RATE OF INFUSION WAS
     Route: 041
     Dates: start: 20240419
  3. DOBUTAMINE [Suspect]
     Active Substance: DOBUTAMINE HYDROCHLORIDE
     Dosage: UNSPECIFIED DOSE AND FREQUENCY THROUGH RIJ TLC
     Route: 042
  4. DEXTROSE [Suspect]
     Active Substance: DEXTROSE\DEXTROSE MONOHYDRATE
     Dosage: UNSPECIFIED DOSE AND FREQUENCY D10, UNSPECIFIED DOSE AND FREQUENCY THROUGH RIJ TLC
     Route: 042
  5. SODIUM BICARBONATE [Suspect]
     Active Substance: SODIUM BICARBONATE
     Dosage: SODIUM BICARBONATE (150 MEQ) 150 ML WAS ADDED TO 850ML D5W TOTAL VOLUME 1000ML, RATE OF INFUSION WAS
     Route: 042
     Dates: start: 20240418
  6. SODIUM BICARBONATE [Suspect]
     Active Substance: SODIUM BICARBONATE
     Dosage: SODIUM BICARBONATE (150 MEQ) 150 ML WAS ADDED TO 850ML D5W TOTAL VOLUME 1000ML, RATE OF INFUSION WAS
     Route: 041
     Dates: start: 20240419
  7. LEVOPHED [Suspect]
     Active Substance: NOREPINEPHRINE BITARTRATE
     Dosage: UNSPECIFIED DOSE AND FREQUENCY THROUGH RIJ TLC
     Route: 042
  8. MORPHINE [Suspect]
     Active Substance: MORPHINE
     Dosage: UNSPECIFIED DOSE AND FREQUENCY THROUGH RIJ TLC
     Route: 042

REACTIONS (5)
  - Death [Fatal]
  - Multiple organ dysfunction syndrome [Unknown]
  - Blister [Unknown]
  - Extravasation [Unknown]
  - Peripheral swelling [Unknown]

NARRATIVE: CASE EVENT DATE: 20240419
